FAERS Safety Report 8093730-4 (Version None)
Quarter: 2012Q1

REPORT INFORMATION
  Report Type: 
  Country: None (occurrence: None)
  Receive Date: 20120129
  Receipt Date: 20111026
  Transmission Date: 20120608
  Serious: No
  Sender: FDA-Public Use
  Company Number: US-ABBOTT-11P-163-0868731-00

PATIENT
  Sex: Female

DRUGS (2)
  1. BLOOD PRESSURE MEDICATIONS [Concomitant]
     Indication: PRODUCT USED FOR UNKNOWN INDICATION
  2. HUMIRA [Suspect]
     Indication: PSORIASIS
     Dosage: 40MG/0.8ML EVERY OTHER WEEK
     Dates: start: 20111001

REACTIONS (1)
  - NASOPHARYNGITIS [None]
